FAERS Safety Report 19108243 (Version 1)
Quarter: 2021Q2

REPORT INFORMATION
  Report Type: Spontaneous
  Country: CA (occurrence: CA)
  Receive Date: 20210408
  Receipt Date: 20210408
  Transmission Date: 20210717
  Serious: Yes (Hospitalization)
  Sender: FDA-Public Use
  Company Number: CA-ORION CORPORATION ORION PHARMA-21_00013958

PATIENT
  Sex: Female

DRUGS (1)
  1. METHOTREXATE (TRADE NAME UNKNOWN) [Suspect]
     Active Substance: METHOTREXATE
     Indication: CROHN^S DISEASE
     Route: 065

REACTIONS (5)
  - Drug ineffective for unapproved indication [Not Recovered/Not Resolved]
  - General physical health deterioration [Unknown]
  - Product use in unapproved indication [Unknown]
  - Rectal haemorrhage [Unknown]
  - Product prescribing issue [Unknown]
